APPROVED DRUG PRODUCT: CARDIOPLEGIC IN PLASTIC CONTAINER
Active Ingredient: CALCIUM CHLORIDE; MAGNESIUM CHLORIDE; POTASSIUM CHLORIDE; SODIUM CHLORIDE
Strength: 17.6MG/100ML;325.3MG/100ML;119.3MG/100ML;643MG/100ML
Dosage Form/Route: SOLUTION;PERFUSION, CARDIAC
Application: A214623 | Product #001 | TE Code: AT
Applicant: FRESENIUS KABI USA LLC
Approved: Feb 18, 2022 | RLD: No | RS: No | Type: RX